FAERS Safety Report 9412103 (Version 3)
Quarter: 2013Q3

REPORT INFORMATION
  Report Type: Spontaneous
  Country: FR (occurrence: FR)
  Receive Date: 20130722
  Receipt Date: 20130909
  Transmission Date: 20140515
  Serious: Yes (Death, Other)
  Sender: FDA-Public Use
  Company Number: FR-009507513-1307FRA007164

PATIENT
  Age: 31 Year
  Sex: Male

DRUGS (1)
  1. MIRTAZAPINE [Suspect]
     Route: 048

REACTIONS (2)
  - Cardiac arrest [Fatal]
  - Pulmonary oedema [Fatal]
